FAERS Safety Report 8060253-8 (Version None)
Quarter: 2012Q1

REPORT INFORMATION
  Report Type: 
  Country: None (occurrence: None)
  Receive Date: 20120120
  Receipt Date: 20120111
  Transmission Date: 20120608
  Serious: Yes (Hospitalization)
  Sender: FDA-Public Use
  Company Number: US-ACTELION-A-NJ2012-59642

PATIENT

DRUGS (4)
  1. CALCIUM CHANNEL BLOCKERS [Concomitant]
  2. EPOPROSTENOL SODIUM [Suspect]
     Indication: PULMONARY ARTERIAL HYPERTENSION
     Dosage: 24 NG/KG, PER MIN
     Route: 041
     Dates: start: 20100810
  3. COUMADIN [Concomitant]
  4. OXYGEN [Concomitant]

REACTIONS (2)
  - PYREXIA [None]
  - GASTROINTESTINAL DISORDER [None]
